FAERS Safety Report 15228605 (Version 1)
Quarter: 2018Q3

REPORT INFORMATION
  Report Type: Spontaneous
  Country: US (occurrence: US)
  Receive Date: 20180801
  Receipt Date: 20180801
  Transmission Date: 20181010
  Serious: No
  Sender: FDA-Public Use
  Company Number: US-BIOGEN-2018BI00605776

PATIENT
  Age: 58 Year
  Sex: Female

DRUGS (1)
  1. TYSABRI [Suspect]
     Active Substance: NATALIZUMAB
     Indication: MULTIPLE SCLEROSIS
     Route: 042
     Dates: start: 20130624

REACTIONS (1)
  - Herpes zoster [Recovered/Resolved with Sequelae]

NARRATIVE: CASE EVENT DATE: 20180617
